FAERS Safety Report 7979027-9 (Version None)
Quarter: 2011Q4

REPORT INFORMATION
  Report Type: 
  Country: None (occurrence: None)
  Receive Date: 20111214
  Receipt Date: 20111213
  Transmission Date: 20120403
  Serious: No
  Sender: FDA-Public Use
  Company Number: US-PFIZER INC-2011303633

PATIENT
  Sex: Female

DRUGS (1)
  1. IBUPROFEN (ADVIL) [Suspect]
     Indication: ANALGESIC THERAPY
     Dosage: 200 MG, AS NEEDED

REACTIONS (2)
  - HYPERSENSITIVITY [None]
  - RASH [None]
